FAERS Safety Report 21778680 (Version 1)
Quarter: 2022Q4

REPORT INFORMATION
  Report Type: Spontaneous
  Country: US (occurrence: US)
  Receive Date: 20221226
  Receipt Date: 20221226
  Transmission Date: 20230113
  Serious: No
  Sender: FDA-Public Use
  Company Number: US-MIGRATION_PFIZER-2022BHV003248

PATIENT
  Age: 60 Year
  Sex: Female

DRUGS (1)
  1. NURTEC ODT [Suspect]
     Active Substance: RIMEGEPANT SULFATE
     Indication: Migraine prophylaxis
     Route: 048
     Dates: start: 20221101

REACTIONS (5)
  - Adverse drug reaction [Recovered/Resolved]
  - Hyperhidrosis [Recovered/Resolved]
  - Tinnitus [Recovered/Resolved]
  - Posture abnormal [Recovered/Resolved]
  - Migraine [Recovered/Resolved]

NARRATIVE: CASE EVENT DATE: 20221101
